FAERS Safety Report 24419517 (Version 2)
Quarter: 2024Q4

REPORT INFORMATION
  Report Type: Report from Study
  Country: US (occurrence: US)
  Receive Date: 20241010
  Receipt Date: 20241018
  Transmission Date: 20250114
  Serious: No
  Sender: ROCHE
  Company Number: US-ROCHE-3111018

PATIENT
  Age: 38 Year
  Sex: Male

DRUGS (2)
  1. CATHFLO ACTIVASE [Suspect]
     Active Substance: ALTEPLASE
     Indication: Device embolisation
     Dosage: DATE OF SERVICE:10/JUN/2021 25-JUN-2021, 30-JUN-2021, 28-JUL-2021, 08-SEP-2021, 12/NOV/2021, 15/NOV/
     Route: 042
  2. CATHFLO ACTIVASE [Suspect]
     Active Substance: ALTEPLASE
     Indication: Thrombosis

REACTIONS (2)
  - Off label use [Unknown]
  - No adverse event [Unknown]
